FAERS Safety Report 7272159-2 (Version None)
Quarter: 2011Q1

REPORT INFORMATION
  Report Type: 
  Country: None (occurrence: None)
  Receive Date: 20110131
  Receipt Date: 20110131
  Transmission Date: 20110831
  Serious: Yes (Hospitalization)
  Sender: FDA-Public Use
  Company Number: None

PATIENT
  Age: 66 Year
  Sex: Female
  Weight: 62 kg

DRUGS (5)
  1. CETUXIMAB [Suspect]
     Indication: SQUAMOUS CELL CARCINOMA
     Dosage: 400 MG/M2, LOADING, IV; 250 MG/M2, IV
     Route: 042
     Dates: start: 20101206, end: 20110117
  2. CETUXIMAB [Suspect]
     Indication: SQUAMOUS CELL CARCINOMA
     Dosage: 400 MG/M2, LOADING, IV; 250 MG/M2, IV
     Route: 042
     Dates: start: 20101129
  3. FLUOXETINE [Concomitant]
  4. PREDNISONE [Concomitant]
  5. PREVACID [Concomitant]

REACTIONS (1)
  - DYSPNOEA [None]
